FAERS Safety Report 6958793-5 (Version None)
Quarter: 2010Q3

REPORT INFORMATION
  Report Type: 
  Country: None (occurrence: None)
  Receive Date: 20100831
  Receipt Date: 20100819
  Transmission Date: 20110219
  Serious: Yes (Disabling, Other)
  Sender: FDA-Public Use
  Company Number: PHHY2010BR55115

PATIENT
  Sex: Female

DRUGS (1)
  1. DIOVAN AMLO [Suspect]
     Dosage: 160/5 MG

REACTIONS (2)
  - GAIT DISTURBANCE [None]
  - LOWER LIMB FRACTURE [None]
